FAERS Safety Report 9825257 (Version 2)
Quarter: 2014Q1

REPORT INFORMATION
  Report Type: Report from Study
  Country: US (occurrence: US)
  Receive Date: 20140117
  Receipt Date: 20140117
  Transmission Date: 20141002
  Serious: Yes (Other)
  Sender: FDA-Public Use
  Company Number: PHEH2013US009583

PATIENT
  Sex: Female

DRUGS (8)
  1. TASIGNA [Suspect]
     Indication: CHRONIC MYELOID LEUKAEMIA
     Dosage: 150 MG, QD
     Route: 048
     Dates: start: 201102
  2. TASIGNA [Suspect]
     Dosage: 150 MG, QOD
     Route: 048
  3. SOTALOL [Concomitant]
  4. CITALOPRAM [Concomitant]
  5. LISINOPRIL [Concomitant]
  6. NIFEDIPINE [Concomitant]
  7. OMEPRAZOLE [Concomitant]
  8. XARELTO [Concomitant]

REACTIONS (4)
  - Atrial fibrillation [Unknown]
  - Dyspnoea [Unknown]
  - Asthenia [Unknown]
  - Malaise [Unknown]
